FAERS Safety Report 9877154 (Version 2)
Quarter: 2014Q1

REPORT INFORMATION
  Report Type: Spontaneous
  Country: US (occurrence: US)
  Receive Date: 20140206
  Receipt Date: 20140307
  Transmission Date: 20141002
  Serious: Yes (Other)
  Sender: FDA-Public Use
  Company Number: US-ENDO PHARMACEUTICALS INC.-HYDR20140006

PATIENT
  Sex: Female

DRUGS (2)
  1. HYDROCORTISONE TABLETS 5MG [Suspect]
     Indication: SECONDARY ADRENOCORTICAL INSUFFICIENCY
     Route: 048
     Dates: start: 20131225, end: 20131229
  2. HYDROCORTISONE TABLETS 5MG [Suspect]
     Route: 048
     Dates: start: 2012, end: 2013

REACTIONS (18)
  - Suicidal behaviour [Unknown]
  - Cardiac disorder [Not Recovered/Not Resolved]
  - Adrenocortical insufficiency acute [Not Recovered/Not Resolved]
  - Confusional state [Not Recovered/Not Resolved]
  - Tremor [Unknown]
  - Mental impairment [Unknown]
  - Balance disorder [Unknown]
  - Visual acuity reduced [Unknown]
  - Colitis [Not Recovered/Not Resolved]
  - Flushing [Unknown]
  - Feeling jittery [Unknown]
  - Dyspnoea [Unknown]
  - Asthenia [Unknown]
  - Mood swings [Unknown]
  - Personality change [Unknown]
  - Depression [Unknown]
  - Hyperhidrosis [Unknown]
  - Drug ineffective [Recovered/Resolved]
